FAERS Safety Report 6314170-1 (Version None)
Quarter: 2009Q3

REPORT INFORMATION
  Report Type: 
  Country: None (occurrence: None)
  Receive Date: 20090817
  Receipt Date: 20090803
  Transmission Date: 20100115
  Serious: Yes (Death, Hospitalization)
  Sender: FDA-Public Use
  Company Number: 2009AL000156

PATIENT
  Age: 80 Year
  Sex: Female

DRUGS (21)
  1. DIGOXIN [Suspect]
     Indication: CARDIAC DISORDER
     Dosage: 0.125MG, DAILY, PO
     Route: 048
     Dates: start: 20080201
  2. ISORDIL [Concomitant]
  3. LANTUS [Concomitant]
  4. XANAX [Concomitant]
  5. VITAMIN B-12 [Concomitant]
  6. K-DUR [Concomitant]
  7. XOPENEX [Concomitant]
  8. BUSPAR [Concomitant]
  9. COREG [Concomitant]
  10. APRESOLINE [Concomitant]
  11. SYNTHROID [Concomitant]
  12. COZAAR [Concomitant]
  13. IRON [Concomitant]
  14. SPIRONOLACTONE [Concomitant]
  15. OXYGEN [Concomitant]
  16. COUMADIN [Concomitant]
  17. KLOR-CON [Concomitant]
  18. ISOSORBIDE DINITRATE [Concomitant]
  19. FUROSEMIDE [Concomitant]
  20. HYDRALAZINE HCL [Concomitant]
  21. INSULIN [Concomitant]

REACTIONS (14)
  - ANAEMIA [None]
  - ARTHRALGIA [None]
  - ASTHENIA [None]
  - CARDIAC FAILURE CONGESTIVE [None]
  - CHRONIC OBSTRUCTIVE PULMONARY DISEASE [None]
  - CONFUSIONAL STATE [None]
  - DIZZINESS [None]
  - DYSPNOEA [None]
  - FALL [None]
  - FATIGUE [None]
  - GAMMOPATHY [None]
  - PARAPROTEINAEMIA [None]
  - RENAL FAILURE ACUTE [None]
  - RESPIRATORY FAILURE [None]
